FAERS Safety Report 13878670 (Version 1)
Quarter: 2017Q3

REPORT INFORMATION
  Report Type: Spontaneous
  Country: CA (occurrence: CA)
  Receive Date: 20170817
  Receipt Date: 20170817
  Transmission Date: 20171127
  Serious: Yes (Death)
  Sender: FDA-Public Use
  Company Number: CA-TEVA-796229ACC

PATIENT
  Age: 23 Year
  Sex: Male
  Weight: 63 kg

DRUGS (3)
  1. DOXEPIN HYDROCHLORIDE. [Suspect]
     Active Substance: DOXEPIN HYDROCHLORIDE
     Route: 065
  2. ALPRAZOLAM. [Concomitant]
     Active Substance: ALPRAZOLAM
  3. FLUVOXAMINE [Concomitant]
     Active Substance: FLUVOXAMINE

REACTIONS (1)
  - Antidepressant drug level above therapeutic [Fatal]
